FAERS Safety Report 10189885 (Version 1)
Quarter: 2014Q2

REPORT INFORMATION
  Report Type: Spontaneous
  Country: US (occurrence: US)
  Receive Date: 20140522
  Receipt Date: 20140522
  Transmission Date: 20141212
  Serious: Yes (Other)
  Sender: FDA-Public Use
  Company Number: US-SANOFI-AVENTIS-2013SA071468

PATIENT
  Age: 53 Year
  Sex: Female

DRUGS (4)
  1. LANTUS SOLOSTAR [Suspect]
     Indication: TYPE 1 DIABETES MELLITUS
     Dosage: DOSE:40 UNIT(S)
     Route: 058
  2. SOLOSTAR [Suspect]
     Indication: TYPE 1 DIABETES MELLITUS
  3. ALL OTHER THERAPEUTIC PRODUCTS [Concomitant]
  4. OXYGEN [Concomitant]

REACTIONS (2)
  - Cataract [Unknown]
  - Visual impairment [Unknown]
